FAERS Safety Report 14168702 (Version 1)
Quarter: 2017Q4

REPORT INFORMATION
  Report Type: Report from Study
  Country: US (occurrence: US)
  Receive Date: 20171107
  Receipt Date: 20171107
  Transmission Date: 20180321
  Serious: Yes (Other)
  Sender: FDA-Public Use
  Company Number: US-TEVA-683627USA

PATIENT
  Age: 34 Year
  Sex: Male

DRUGS (5)
  1. BACLOFEN. [Concomitant]
     Active Substance: BACLOFEN
  2. MELOXICAM. [Concomitant]
     Active Substance: MELOXICAM
  3. VITAMIN D [Concomitant]
     Active Substance: CHOLECALCIFEROL
  4. GABAPENTIN. [Concomitant]
     Active Substance: GABAPENTIN
  5. COPAXONE [Suspect]
     Active Substance: GLATIRAMER ACETATE
     Indication: MULTIPLE SCLEROSIS
     Route: 058
     Dates: start: 20150427, end: 20160729

REACTIONS (3)
  - Blindness transient [Unknown]
  - Multiple sclerosis [Not Recovered/Not Resolved]
  - Hepatitis C [Recovered/Resolved]

NARRATIVE: CASE EVENT DATE: 20160804
